FAERS Safety Report 18151419 (Version 2)
Quarter: 2020Q3

REPORT INFORMATION
  Report Type: Spontaneous
  Country: US (occurrence: US)
  Receive Date: 20200814
  Receipt Date: 20200820
  Transmission Date: 20201103
  Serious: Yes (Death)
  Sender: FDA-Public Use
  Company Number: US-PFIZER INC-2020064716

PATIENT
  Age: 78 Year
  Sex: Male

DRUGS (2)
  1. CAMPTOSAR [Suspect]
     Active Substance: IRINOTECAN HYDROCHLORIDE
     Dosage: 400 MG (4X100 MG VIALS), DAILY
     Dates: start: 20200303, end: 20200303
  2. CAMPTOSAR [Suspect]
     Active Substance: IRINOTECAN HYDROCHLORIDE
     Dosage: 200 MG, CYCLIC (EVERY 2 WEEKS)
     Dates: start: 20200204

REACTIONS (1)
  - Death [Fatal]

NARRATIVE: CASE EVENT DATE: 20200308
